FAERS Safety Report 18040542 (Version 1)
Quarter: 2020Q3

REPORT INFORMATION
  Report Type: Spontaneous
  Country: US (occurrence: US)
  Receive Date: 20200717
  Receipt Date: 20200717
  Transmission Date: 20201103
  Serious: No
  Sender: FDA-Public Use
  Company Number: US-ROCHE-2483096

PATIENT
  Sex: Male

DRUGS (4)
  1. HEMLIBRA [Suspect]
     Active Substance: EMICIZUMAB-KXWH
     Route: 058
     Dates: start: 20190719
  2. HEMLIBRA [Suspect]
     Active Substance: EMICIZUMAB-KXWH
     Route: 058
     Dates: start: 20190719
  3. HEMLIBRA [Suspect]
     Active Substance: EMICIZUMAB-KXWH
     Indication: FACTOR VIII DEFICIENCY
     Route: 058
     Dates: start: 20191110
  4. HEMLIBRA [Suspect]
     Active Substance: EMICIZUMAB-KXWH
     Route: 058
     Dates: start: 20191110

REACTIONS (1)
  - Nausea [Recovered/Resolved]
